FAERS Safety Report 16962332 (Version 1)
Quarter: 2019Q4

REPORT INFORMATION
  Report Type: Spontaneous
  Country: US (occurrence: US)
  Receive Date: 20191025
  Receipt Date: 20191025
  Transmission Date: 20200122
  Serious: No
  Sender: FDA-Public Use
  Company Number: US-NOVOPROD-658879

PATIENT
  Age: 89 Year
  Sex: Female

DRUGS (2)
  1. VAGIFEM LD [Suspect]
     Active Substance: ESTRADIOL
     Indication: MENOPAUSAL SYMPTOMS
     Dosage: 10 MCG
     Route: 067
     Dates: start: 2010
  2. VAGIFEM LD [Suspect]
     Active Substance: ESTRADIOL
     Indication: INCONTINENCE

REACTIONS (5)
  - Device malfunction [Unknown]
  - Incontinence [Not Recovered/Not Resolved]
  - Hypertonic bladder [Unknown]
  - Condition aggravated [Not Recovered/Not Resolved]
  - Device issue [Unknown]

NARRATIVE: CASE EVENT DATE: 201903
